FAERS Safety Report 8756375 (Version 1)
Quarter: 2012Q4

REPORT INFORMATION
  Report Type: 
  Country: KR (occurrence: KR)
  Receive Date: 20120828
  Receipt Date: 20120828
  Transmission Date: 20130627
  Serious: Yes (Other)
  Sender: FDA-Public Use
  Company Number: KR-009507513-1208KOR010340

PATIENT

DRUGS (1)
  1. TEMODAL [Suspect]
     Indication: MALIGNANT GLIOMA
     Dosage: UNK
     Dates: start: 200401, end: 201005

REACTIONS (9)
  - Toxicity to various agents [Unknown]
  - Nausea [None]
  - Vomiting [None]
  - Decreased appetite [None]
  - Thrombocytopenia [None]
  - Anaemia [None]
  - Neutropenia [None]
  - Fatigue [None]
  - Leukopenia [None]
